FAERS Safety Report 6653423-4 (Version None)
Quarter: 2010Q1

REPORT INFORMATION
  Report Type: 
  Country: None (occurrence: None)
  Receive Date: 20100317
  Receipt Date: 20100317
  Transmission Date: 20100710
  Serious: No
  Sender: FDA-Public Use
  Company Number: None

PATIENT
  Age: 24 Year
  Sex: Male

DRUGS (1)
  1. BACTRIM [Suspect]
     Dosage: 1 TAB BID FOR 7 DAYS
     Dates: start: 20080428, end: 20080505

REACTIONS (2)
  - AUTOIMMUNE HEPATITIS [None]
  - LIVER INJURY [None]
